FAERS Safety Report 24318897 (Version 1)
Quarter: 2024Q3

REPORT INFORMATION
  Report Type: Spontaneous
  Country: PL (occurrence: PL)
  Receive Date: 20240913
  Receipt Date: 20240913
  Transmission Date: 20241017
  Serious: Yes (Other)
  Sender: TAKEDA
  Company Number: PL-CELLTRION INC.-2024PL020811

PATIENT
  Age: 47 Year
  Sex: Male
  Weight: 90 kg

DRUGS (17)
  1. MESALAMINE [Suspect]
     Active Substance: MESALAMINE
     Indication: Colitis ulcerative
     Dosage: 4 GRAM, QD
     Route: 065
  2. METHOTREXATE [Suspect]
     Active Substance: METHOTREXATE
     Indication: Colitis ulcerative
     Dosage: 15 MILLIGRAM, 1/WEEK
     Route: 058
  3. TOFACITINIB [Suspect]
     Active Substance: TOFACITINIB
     Indication: Colitis ulcerative
     Dosage: 5 MILLIGRAM
     Route: 048
  4. TOFACITINIB [Suspect]
     Active Substance: TOFACITINIB
     Dosage: 10 MILLIGRAM, BID
     Route: 048
  5. TOFACITINIB [Suspect]
     Active Substance: TOFACITINIB
     Dosage: 10 MILLIGRAM, BID
     Route: 048
  6. SULFASALAZINE [Suspect]
     Active Substance: SULFASALAZINE
     Indication: Colitis ulcerative
     Dosage: 4 GRAM, QD
     Route: 065
  7. ADALIMUMAB [Suspect]
     Active Substance: ADALIMUMAB
     Indication: Colitis ulcerative
     Dosage: 40 MILLIGRAM, Q2WEEKS
     Route: 058
  8. ADALIMUMAB [Suspect]
     Active Substance: ADALIMUMAB
     Dosage: 80 MILLIGRAM
     Route: 058
  9. ADALIMUMAB [Suspect]
     Active Substance: ADALIMUMAB
     Dosage: 160 MILLIGRAM
     Route: 058
  10. INFLIXIMAB [Suspect]
     Active Substance: INFLIXIMAB
     Indication: Colitis ulcerative
     Dosage: UNK
     Route: 042
  11. INFLIXIMAB [Suspect]
     Active Substance: INFLIXIMAB
     Dosage: UNK
     Route: 042
  12. METHYLPREDNISOLONE [Suspect]
     Active Substance: METHYLPREDNISOLONE
     Indication: Colitis ulcerative
     Dosage: 20 MILLIGRAM, QD
     Route: 048
  13. METHYLPREDNISOLONE [Suspect]
     Active Substance: METHYLPREDNISOLONE
     Dosage: 4 MILLIGRAM
     Route: 048
  14. METHYLPREDNISOLONE [Suspect]
     Active Substance: METHYLPREDNISOLONE
     Dosage: 28 MILLIGRAM, QD
     Route: 048
  15. METHYLPREDNISOLONE [Suspect]
     Active Substance: METHYLPREDNISOLONE
     Dosage: 16 MILLIGRAM, QD
     Route: 048
  16. USTEKINUMAB [Suspect]
     Active Substance: USTEKINUMAB
     Indication: Colitis ulcerative
     Dosage: 520 MILLIGRAM
     Route: 042
  17. USTEKINUMAB [Suspect]
     Active Substance: USTEKINUMAB
     Dosage: 90 MILLIGRAM
     Route: 058

REACTIONS (1)
  - Anaphylactic shock [Unknown]
